FAERS Safety Report 15291593 (Version 2)
Quarter: 2018Q4

REPORT INFORMATION
  Report Type: Not Available
  Country: CA (occurrence: CA)
  Receive Date: 20180817
  Receipt Date: 20181214
  Transmission Date: 20190204
  Serious: Yes (Other)
  Sender: FDA-Public Use
  Company Number: CA-CELGENEUS-CAN-20180803560

PATIENT
  Age: 69 Year
  Sex: Female

DRUGS (10)
  1. BETAMETHASONE DIPROPIONATE W/CALCIPOTRIOL [Concomitant]
     Indication: PRODUCT USED FOR UNKNOWN INDICATION
     Route: 065
  2. AMITRIPTYLINE [Concomitant]
     Active Substance: AMITRIPTYLINE
     Indication: PRODUCT USED FOR UNKNOWN INDICATION
     Route: 065
  3. OTEZLA [Suspect]
     Active Substance: APREMILAST
     Indication: PRODUCT USED FOR UNKNOWN INDICATION
     Route: 048
  4. AMLODIPINE [Suspect]
     Active Substance: AMLODIPINE BESYLATE
     Indication: PRODUCT USED FOR UNKNOWN INDICATION
     Route: 065
  5. BETAMETHASONE. [Concomitant]
     Active Substance: BETAMETHASONE
     Indication: PRODUCT USED FOR UNKNOWN INDICATION
     Route: 061
  6. MELATONIN [Concomitant]
     Active Substance: MELATONIN
     Indication: PRODUCT USED FOR UNKNOWN INDICATION
     Route: 065
  7. CICLOSPORIN [Suspect]
     Active Substance: CYCLOSPORINE
     Indication: PSORIASIS
     Route: 065
  8. ZOPICLONE [Suspect]
     Active Substance: ZOPICLONE
     Indication: PRODUCT USED FOR UNKNOWN INDICATION
     Route: 065
  9. ROSUVASTATIN CALCIUM. [Concomitant]
     Active Substance: ROSUVASTATIN CALCIUM
     Indication: PRODUCT USED FOR UNKNOWN INDICATION
     Route: 065
  10. TELMISARTAN. [Suspect]
     Active Substance: TELMISARTAN
     Indication: PRODUCT USED FOR UNKNOWN INDICATION
     Route: 065

REACTIONS (10)
  - Pneumonia [Unknown]
  - Tachycardia [Unknown]
  - Upper respiratory tract infection [Unknown]
  - Nausea [Unknown]
  - Hypertension [Unknown]
  - Psoriasis [Unknown]
  - Nasopharyngitis [Unknown]
  - Bronchitis [Unknown]
  - Blood cholesterol increased [Unknown]
  - Malaise [Unknown]
